FAERS Safety Report 9159999 (Version 4)
Quarter: 2013Q2

REPORT INFORMATION
  Report Type: Spontaneous
  Country: JP (occurrence: JP)
  Receive Date: 20130313
  Receipt Date: 20130411
  Transmission Date: 20140414
  Serious: Yes (Hospitalization)
  Sender: FDA-Public Use
  Company Number: JP-SANOFI-AVENTIS-2013SA023847

PATIENT
  Age: 31 Year
  Sex: Female
  Weight: 57.4 kg

DRUGS (7)
  1. CLEXANE [Suspect]
     Indication: THROMBOSIS PROPHYLAXIS
     Dosage: FORM: AMPOULE
     Route: 058
     Dates: start: 20130222, end: 20130223
  2. CLEXANE [Suspect]
     Indication: THROMBOSIS PROPHYLAXIS
     Dosage: FORM: AMPOULE?FREQ: BID: AT 08:00 AND 20:00 HOURS
     Route: 058
     Dates: start: 20130224, end: 20130228
  3. METHERGIN [Concomitant]
     Indication: UTERINE CONTRACTIONS DURING PREGNANCY
     Route: 048
     Dates: start: 20130222, end: 20130225
  4. LOXONIN [Concomitant]
     Indication: PAIN
     Route: 048
     Dates: start: 20130222, end: 20130228
  5. ROPION [Concomitant]
     Indication: PAIN
     Route: 042
     Dates: start: 20130221, end: 20130221
  6. SOLDEM 3A [Concomitant]
     Route: 042
     Dates: start: 20130221, end: 20130223
  7. CEFAZOLIN SODIUM [Concomitant]
     Indication: ANTIBIOTIC THERAPY
     Route: 042
     Dates: start: 20130221, end: 20130223

REACTIONS (3)
  - Abdominal wall abscess [Recovering/Resolving]
  - Haematoma [Recovering/Resolving]
  - Exposure during breast feeding [Unknown]
